FAERS Safety Report 5270431-9 (Version None)
Quarter: 2007Q1

REPORT INFORMATION
  Report Type: 
  Country: None (occurrence: None)
  Receive Date: 20070314
  Receipt Date: 20070223
  Transmission Date: 20070707
  Serious: Yes (Hospitalization)
  Sender: FDA-Public Use
  Company Number: VE200702005077

PATIENT
  Age: 72 Year
  Sex: Male

DRUGS (2)
  1. ZYPREXA [Suspect]
     Indication: PSYCHOMOTOR HYPERACTIVITY
     Dosage: 5 MG, DAILY (1/D), ORAL
     Route: 048
  2. ZYPREXA [Suspect]
     Indication: AGITATION
     Dosage: 10 MG, INTRAVENOUS
     Route: 042
     Dates: start: 20070101, end: 20070101

REACTIONS (10)
  - AGITATION [None]
  - AKATHISIA [None]
  - CONFUSIONAL STATE [None]
  - FALL [None]
  - HIP FRACTURE [None]
  - HYPERHIDROSIS [None]
  - INCORRECT ROUTE OF DRUG ADMINISTRATION [None]
  - MEDICATION ERROR [None]
  - PSYCHOMOTOR HYPERACTIVITY [None]
  - TACHYCARDIA [None]
